FAERS Safety Report 17567906 (Version 2)
Quarter: 2020Q1

REPORT INFORMATION
  Report Type: Report from Study
  Country: DE (occurrence: DE)
  Receive Date: 20200320
  Receipt Date: 20200327
  Transmission Date: 20200409
  Serious: Yes (Death, Other)
  Sender: FDA-Public Use
  Company Number: NVSC2020DE078685

PATIENT
  Sex: Female

DRUGS (4)
  1. KISQALI [Suspect]
     Active Substance: RIBOCICLIB
     Indication: BREAST CANCER METASTATIC
     Dosage: 600 MG, QD (SCHEMA 21 DAYS INTAKE, THAN 7 DAYS PAUSE)
     Route: 048
     Dates: start: 20191216, end: 20200112
  2. FULVESTRANT. [Suspect]
     Active Substance: FULVESTRANT
     Dosage: 500 MG, Q4W
     Route: 030
     Dates: start: 20200309
  3. FULVESTRANT. [Suspect]
     Active Substance: FULVESTRANT
     Indication: BREAST CANCER METASTATIC
     Dosage: 500 MG, Q4W
     Route: 030
     Dates: start: 20191216
  4. KISQALI [Suspect]
     Active Substance: RIBOCICLIB
     Dosage: 400 MG, QD (SCHEMA 21 DAYS INTAKE, THAN 7 DAYS PAUSE)
     Route: 048
     Dates: start: 20200113, end: 20200301

REACTIONS (4)
  - Acute kidney injury [Unknown]
  - Ileus [Unknown]
  - Malignant neoplasm progression [Fatal]
  - Breast cancer metastatic [Fatal]

NARRATIVE: CASE EVENT DATE: 20200217
